FAERS Safety Report 23706194 (Version 1)
Quarter: 2024Q2

REPORT INFORMATION
  Report Type: Spontaneous
  Country: US (occurrence: US)
  Receive Date: 20240404
  Receipt Date: 20240404
  Transmission Date: 20240716
  Serious: Yes (Disabling)
  Sender: FDA-Public Use
  Company Number: US-MYLANLABS-2024M1029224

PATIENT
  Sex: Female
  Weight: 70.31 kg

DRUGS (5)
  1. ATORVASTATIN [Suspect]
     Active Substance: ATORVASTATIN
     Indication: Cardiac disorder
     Dosage: 10 MILLIGRAM
     Route: 048
     Dates: start: 20160120
  2. PREMPRO [Suspect]
     Active Substance: ESTROGENS, CONJUGATED\MEDROXYPROGESTERONE ACETATE
     Indication: Menopause
     Dosage: (0.45/1.5 MG), QD
     Route: 048
  3. PREMPRO [Suspect]
     Active Substance: ESTROGENS, CONJUGATED\MEDROXYPROGESTERONE ACETATE
     Dosage: (0.35/1.5 MG), QD
     Route: 048
     Dates: start: 20240118, end: 20240301
  4. METOPROLOL [Concomitant]
     Active Substance: METOPROLOL
     Indication: Cardiac disorder
     Dosage: 25 MILLIGRAM
     Route: 048
     Dates: start: 20160120
  5. LOSARTAN [Concomitant]
     Active Substance: LOSARTAN
     Indication: Cardiac disorder
     Dosage: 25 MILLIGRAM
     Route: 048
     Dates: start: 20160120

REACTIONS (1)
  - Hot flush [Recovered/Resolved]
